FAERS Safety Report 20393499 (Version 3)
Quarter: 2022Q2

REPORT INFORMATION
  Report Type: Spontaneous
  Country: US (occurrence: US)
  Receive Date: 20220128
  Receipt Date: 20220408
  Transmission Date: 20220721
  Serious: Yes (Other)
  Sender: FDA-Public Use
  Company Number: US-009507513-2201USA007656

PATIENT
  Age: 67 Year
  Sex: Female

DRUGS (4)
  1. KEYTRUDA [Suspect]
     Active Substance: PEMBROLIZUMAB
     Indication: Endometrial cancer
     Dosage: UNK
     Route: 042
  2. LENVATINIB MESYLATE [Suspect]
     Active Substance: LENVATINIB MESYLATE
     Indication: Endometrial cancer
     Dosage: DOSE: 12 MILLIGRAM, FREQUENCY: 1 D
     Route: 048
     Dates: start: 20211214, end: 202201
  3. LENVATINIB MESYLATE [Suspect]
     Active Substance: LENVATINIB MESYLATE
     Dosage: 8 MG ONCE DAILY
     Route: 048
     Dates: start: 202201, end: 2022
  4. LENVATINIB MESYLATE [Suspect]
     Active Substance: LENVATINIB MESYLATE
     Dosage: 12 MG, 1D
     Dates: start: 2022

REACTIONS (11)
  - Electrocardiogram QT prolonged [Recovered/Resolved]
  - Hyperthyroidism [Unknown]
  - Electrocardiogram T wave abnormal [Recovered/Resolved]
  - Hypertension [Unknown]
  - Insomnia [Unknown]
  - Skin burning sensation [Unknown]
  - Fatigue [Recovering/Resolving]
  - Feeling abnormal [Unknown]
  - Headache [Recovered/Resolved]
  - Hypermetabolism [Not Recovered/Not Resolved]
  - Diarrhoea [Unknown]

NARRATIVE: CASE EVENT DATE: 20211201
